FAERS Safety Report 8429864-1 (Version None)
Quarter: 2012Q2

REPORT INFORMATION
  Report Type: 
  Country: None (occurrence: None)
  Receive Date: 20120612
  Receipt Date: 20120604
  Transmission Date: 20120825
  Serious: Yes (Other)
  Sender: FDA-Public Use
  Company Number: US-ASTRAZENECA-2012SE19171

PATIENT
  Age: 79 Year
  Sex: Male

DRUGS (2)
  1. CRESTOR [Suspect]
     Dosage: EVERY DAY
     Route: 048
  2. NEXIUM [Suspect]
     Route: 048

REACTIONS (2)
  - NEOPLASM MALIGNANT [None]
  - MEMORY IMPAIRMENT [None]
